FAERS Safety Report 6069285-2 (Version None)
Quarter: 2009Q1

REPORT INFORMATION
  Report Type: 
  Country: None (occurrence: None)
  Receive Date: 20090206
  Receipt Date: 20090127
  Transmission Date: 20090719
  Serious: Yes (Other)
  Sender: FDA-Public Use
  Company Number: PT-PFIZER INC-2009154948

PATIENT

DRUGS (5)
  1. CHAMPIX [Suspect]
     Indication: SMOKING CESSATION THERAPY
     Dosage: UNK
     Route: 048
  2. VENLAFAXINE [Concomitant]
     Dosage: 300 MG, 1X/DAY
     Route: 048
  3. RIVOTRIL [Concomitant]
     Dosage: 2 MG, UNK
     Route: 048
  4. LAMOTRIGINE [Concomitant]
     Dosage: UNK
     Route: 048
  5. SEROQUEL [Concomitant]
     Dosage: 300 MG, 1X/DAY

REACTIONS (2)
  - BIPOLAR DISORDER [None]
  - DEPRESSION [None]
